FAERS Safety Report 14605128 (Version 1)
Quarter: 2018Q1

REPORT INFORMATION
  Report Type: Spontaneous
  Country: US (occurrence: US)
  Receive Date: 20180306
  Receipt Date: 20180306
  Transmission Date: 20180509
  Serious: Yes (Hospitalization)
  Sender: FDA-Public Use
  Company Number: None

PATIENT
  Age: 69 Year
  Sex: Male
  Weight: 91 kg

DRUGS (10)
  1. WELLBUTRIN [Concomitant]
     Active Substance: BUPROPION HYDROCHLORIDE
  2. FINASTERIDE. [Concomitant]
     Active Substance: FINASTERIDE
  3. IBUPROFEN. [Concomitant]
     Active Substance: IBUPROFEN
  4. PRAZEPAM [Concomitant]
     Active Substance: PRAZEPAM
  5. ARIPIPAZOLE [Suspect]
     Active Substance: ARIPIPRAZOLE
     Indication: DEPRESSION
     Route: 048
  6. MIRALAX [Concomitant]
     Active Substance: POLYETHYLENE GLYCOL 3350
  7. ATENOLOL. [Concomitant]
     Active Substance: ATENOLOL
  8. CHLOROTHALIDONE [Concomitant]
  9. SIMVASTATIN. [Concomitant]
     Active Substance: SIMVASTATIN
  10. LITHIUM. [Suspect]
     Active Substance: LITHIUM
     Route: 048

REACTIONS (4)
  - Tremor [None]
  - Balance disorder [None]
  - Asthenia [None]
  - Gait disturbance [None]

NARRATIVE: CASE EVENT DATE: 20170924
